FAERS Safety Report 9197562 (Version 2)
Quarter: 2013Q3

REPORT INFORMATION
  Report Type: Report from Study
  Country: JP (occurrence: JP)
  Receive Date: 20130328
  Receipt Date: 20130710
  Transmission Date: 20140515
  Serious: Yes (Hospitalization)
  Sender: FDA-Public Use
  Company Number: JP-GLAXOSMITHKLINE-B0877219A

PATIENT
  Age: 57 Year
  Sex: Female
  Weight: 65 kg

DRUGS (13)
  1. TYKERB [Suspect]
     Indication: BREAST CANCER
     Route: 048
     Dates: start: 20121016, end: 20130218
  2. TYKERB [Suspect]
     Indication: BREAST CANCER
     Route: 048
     Dates: start: 20130219, end: 20130317
  3. HERCEPTIN [Suspect]
     Indication: BREAST CANCER
     Route: 042
     Dates: start: 20121016
  4. HERCEPTIN [Suspect]
     Indication: BREAST CANCER
     Route: 042
     Dates: start: 20121023, end: 20121120
  5. HERCEPTIN [Suspect]
     Indication: BREAST CANCER
     Route: 042
     Dates: start: 20121127, end: 20130129
  6. HERCEPTIN [Suspect]
     Indication: BREAST CANCER
     Route: 042
     Dates: start: 20130219
  7. PACLITAXEL [Suspect]
     Indication: BREAST CANCER
     Route: 042
     Dates: start: 20130219, end: 20130312
  8. LOPEMIN [Concomitant]
     Indication: DIARRHOEA
     Route: 048
     Dates: start: 20130219
  9. POSTERISAN [Concomitant]
     Indication: ANAL FISSURE
     Route: 061
     Dates: start: 20121106
  10. CHLOMY-P [Concomitant]
     Indication: PARONYCHIA
     Route: 061
     Dates: start: 20121218
  11. VIBRAMYCIN [Concomitant]
     Indication: PARONYCHIA
     Route: 048
     Dates: start: 20121218
  12. GASTER D [Concomitant]
     Indication: ABDOMINAL PAIN UPPER
     Route: 048
     Dates: start: 20130312
  13. LOXONIN [Concomitant]
     Indication: HEADACHE
     Route: 048

REACTIONS (1)
  - Cardiac failure congestive [Recovering/Resolving]
